FAERS Safety Report 8986929 (Version 1)
Quarter: 2012Q4

REPORT INFORMATION
  Report Type: 
  Country: CA (occurrence: CA)
  Receive Date: 20121227
  Receipt Date: 20121227
  Transmission Date: 20130627
  Serious: Yes (Death)
  Sender: FDA-Public Use
  Company Number: PHHY2012CA119898

PATIENT
  Age: 60 Year
  Sex: Female

DRUGS (1)
  1. ZOMETA [Suspect]
     Indication: COLORECTAL CANCER
     Dosage: 4 mg, every 4 weeks

REACTIONS (1)
  - Death [Fatal]
